FAERS Safety Report 5078542-8 (Version None)
Quarter: 2006Q3

REPORT INFORMATION
  Report Type: 
  Country: None (occurrence: None)
  Receive Date: 20060808
  Receipt Date: 20060727
  Transmission Date: 20061208
  Serious: Yes (Hospitalization)
  Sender: FDA-Public Use
  Company Number: 2006BI010627

PATIENT
  Age: 64 Year
  Sex: Female
  Weight: 49.8957 kg

DRUGS (4)
  1. AVONEX [Suspect]
     Indication: MULTIPLE SCLEROSIS
     Dosage: 30 UG; QW; IM
     Route: 030
     Dates: start: 20000101, end: 20030101
  2. AVONEX [Suspect]
     Indication: MULTIPLE SCLEROSIS
     Dosage: 30 UG; QW; IM
     Route: 030
     Dates: start: 20030101
  3. PROVIGIL [Concomitant]
  4. DARVOCET [Concomitant]

REACTIONS (4)
  - ABDOMINAL PAIN UPPER [None]
  - COLONIC POLYP [None]
  - GASTROINTESTINAL DISORDER [None]
  - GASTROINTESTINAL INFECTION [None]
